FAERS Safety Report 9224069 (Version 3)
Quarter: 2014Q3

REPORT INFORMATION
  Report Type: Spontaneous
  Country: US (occurrence: US)
  Receive Date: 20130411
  Receipt Date: 20140729
  Transmission Date: 20150326
  Serious: Yes (Death, Life-Threatening, Hospitalization, Disabling, Other)
  Sender: FDA-Public Use
  Company Number: US-009507513-1304USA003567

PATIENT
  Age: 65 Year
  Sex: Male

DRUGS (3)
  1. INTEGRILIN [Suspect]
     Active Substance: EPTIFIBATIDE
     Indication: PERCUTANEOUS CORONARY INTERVENTION
     Dosage: UNK
     Route: 040
     Dates: start: 20130321
  2. PLAVIX [Concomitant]
     Active Substance: CLOPIDOGREL BISULFATE
     Dosage: 300 MG, AT NIGHT
     Route: 048
     Dates: start: 20130320
  3. ANGIOMAX [Concomitant]
     Active Substance: BIVALIRUDIN
     Dosage: UNK
     Dates: start: 20130321

REACTIONS (2)
  - Pelvic haemorrhage [Unknown]
  - Death [Fatal]

NARRATIVE: CASE EVENT DATE: 201303
